FAERS Safety Report 10231852 (Version 1)
Quarter: 2014Q2

REPORT INFORMATION
  Report Type: Spontaneous
  Country: GB (occurrence: GB)
  Receive Date: 20140612
  Receipt Date: 20140612
  Transmission Date: 20141212
  Serious: Yes (Other)
  Sender: FDA-Public Use
  Company Number: GB-009507513-1406GBR002688

PATIENT
  Age: 66 Year
  Sex: Male
  Weight: 87 kg

DRUGS (1)
  1. SIMVASTATIN [Suspect]
     Dosage: UNK
     Route: 048

REACTIONS (2)
  - Pain [Recovered/Resolved]
  - Arthralgia [Recovered/Resolved]
